FAERS Safety Report 23210045 (Version 1)
Quarter: 2023Q4

REPORT INFORMATION
  Report Type: Spontaneous
  Country: US (occurrence: US)
  Receive Date: 20231121
  Receipt Date: 20231121
  Transmission Date: 20240110
  Serious: Yes (Hospitalization, Other)
  Sender: FDA-Public Use
  Company Number: US-drreddys-LIT/USA/23/0183512

PATIENT
  Age: 8 Year
  Sex: Male

DRUGS (2)
  1. MYCOPHENOLATE MOFETIL [Suspect]
     Active Substance: MYCOPHENOLATE MOFETIL
     Indication: Focal segmental glomerulosclerosis
  2. ABATACEPT [Concomitant]
     Active Substance: ABATACEPT
     Indication: Proteinuria

REACTIONS (2)
  - Renal failure [Recovering/Resolving]
  - Treatment failure [Unknown]
